FAERS Safety Report 9316420 (Version 1)
Quarter: 2013Q1

REPORT INFORMATION
  Report Type: Spontaneous
  Country: DK (occurrence: None)
  Receive Date: 20121116
  Receipt Date: 20121116
  Transmission Date: 20140127
  Serious: Yes (Hospitalization)
  Sender: FDA-Public Use
  Company Number: 2012033922

PATIENT
  Age: 75 Year
  Sex: Male

DRUGS (1)
  1. PRIVIGEN (IMMUNE GLOBULIN INTRAVENOUS (HUJAN) 10% LIQUID) SOLUTION FOR INFUSION [Suspect]
     Indication: MYOSITIS
     Dosage: STRENGTH: 100 MG/ML
     Route: 042
     Dates: start: 20061228, end: 20121023

REACTIONS (3)
  - Cerebrovascular accident [None]
  - Deep vein thrombosis [None]
  - Off label use [None]
